FAERS Safety Report 6265919-8 (Version None)
Quarter: 2009Q3

REPORT INFORMATION
  Report Type: 
  Country: None (occurrence: None)
  Receive Date: 20090709
  Receipt Date: 20090709
  Transmission Date: 20100115
  Serious: Yes (Life-Threatening)
  Sender: FDA-Public Use
  Company Number: None

PATIENT
  Age: 43 Year
  Sex: Male

DRUGS (1)
  1. PROPOFOL [Suspect]
     Indication: SEDATIVE THERAPY
     Dosage: IV DRIP
     Route: 041
     Dates: start: 20090704, end: 20090707

REACTIONS (4)
  - CARDIAC ENZYMES INCREASED [None]
  - LACTIC ACIDOSIS [None]
  - MYOGLOBIN BLOOD INCREASED [None]
  - PROPOFOL INFUSION SYNDROME [None]
